FAERS Safety Report 8371579-2 (Version None)
Quarter: 2012Q2

REPORT INFORMATION
  Report Type: 
  Country: None (occurrence: None)
  Receive Date: 20120518
  Receipt Date: 20120507
  Transmission Date: 20120825
  Serious: No
  Sender: FDA-Public Use
  Company Number: US-ASTRAZENECA-2012SE29188

PATIENT
  Age: 70 Year
  Sex: Female
  Weight: 54.9 kg

DRUGS (1)
  1. CRESTOR [Suspect]
     Indication: BLOOD CHOLESTEROL INCREASED
     Route: 048
     Dates: start: 20120222

REACTIONS (5)
  - MUSCLE SPASMS [None]
  - RASH [None]
  - PAIN IN EXTREMITY [None]
  - FATIGUE [None]
  - ABDOMINAL PAIN LOWER [None]
